FAERS Safety Report 8462084-3 (Version None)
Quarter: 2012Q2

REPORT INFORMATION
  Report Type: 
  Country: None (occurrence: None)
  Receive Date: 20120625
  Receipt Date: 20120619
  Transmission Date: 20120825
  Serious: Yes (Other)
  Sender: FDA-Public Use
  Company Number: US-PFIZER INC-2012147913

PATIENT
  Sex: Male
  Weight: 94.3 kg

DRUGS (4)
  1. NEURONTIN [Suspect]
     Indication: PAIN IN EXTREMITY
  2. HYDROCODONE [Concomitant]
     Indication: BACK PAIN
     Dosage: UNK
  3. HYDROCODONE [Concomitant]
     Indication: PAIN IN EXTREMITY
  4. NEURONTIN [Suspect]
     Indication: BACK PAIN
     Dosage: UNK
     Route: 048
     Dates: start: 20100801

REACTIONS (1)
  - MULTIPLE SCLEROSIS [None]
